FAERS Safety Report 10172075 (Version 1)
Quarter: 2014Q2

REPORT INFORMATION
  Report Type: Report from Study
  Country: BR (occurrence: BR)
  Receive Date: 20140515
  Receipt Date: 20140515
  Transmission Date: 20141212
  Serious: Yes (Other)
  Sender: FDA-Public Use
  Company Number: PHHY2014BR056840

PATIENT
  Sex: Female
  Weight: 47.8 kg

DRUGS (5)
  1. ONBREZ [Suspect]
     Indication: FATIGUE
     Dosage: 1 DF, QD
     Route: 055
  2. ONBREZ [Suspect]
     Indication: OFF LABEL USE
     Dosage: UNK UKN, UNK
     Route: 055
  3. RASILEZ [Suspect]
     Indication: BLOOD PRESSURE ABNORMAL
     Dosage: UNK UKN, UNK
     Route: 048
  4. DAFLON (DIOSMIN/HESPERIDIN) [Concomitant]
     Indication: VARICOSE VEIN
     Dosage: UNK
  5. CALACT [Concomitant]
     Indication: BLOOD CALCIUM ABNORMAL
     Dosage: UNK

REACTIONS (3)
  - Blood pressure decreased [Unknown]
  - Respiratory rate increased [Unknown]
  - Fatigue [Unknown]
